FAERS Safety Report 10763307 (Version 1)
Quarter: 2015Q1

REPORT INFORMATION
  Report Type: Spontaneous
  Country: US (occurrence: None)
  Receive Date: 20150129
  Receipt Date: 20150129
  Transmission Date: 20150721
  Serious: Yes (Hospitalization)
  Sender: FDA-Public Use
  Company Number: 2014012857

PATIENT
  Sex: Female

DRUGS (6)
  1. LISINOPRIL (LISINOPRIL) [Concomitant]
     Active Substance: LISINOPRIL
  2. CITALOPRAM (CITALOPRAM HYDROCHLORIDE) [Concomitant]
  3. KEPPRA XR [Suspect]
     Active Substance: LEVETIRACETAM
     Indication: PROPHYLAXIS
  4. LAMICTAL [Concomitant]
     Active Substance: LAMOTRIGINE
  5. KEPPRA XR [Suspect]
     Active Substance: LEVETIRACETAM
     Indication: SEIZURE
  6. KEPPRA XR [Suspect]
     Active Substance: LEVETIRACETAM
     Indication: GENERALISED TONIC-CLONIC SEIZURE

REACTIONS (4)
  - Generalised tonic-clonic seizure [None]
  - Amnesia [None]
  - Off label use [None]
  - Inappropriate schedule of drug administration [None]
